FAERS Safety Report 7913716-7 (Version None)
Quarter: 2011Q4

REPORT INFORMATION
  Report Type: 
  Country: None (occurrence: None)
  Receive Date: 20111115
  Receipt Date: 20111104
  Transmission Date: 20120403
  Serious: Yes (Other)
  Sender: FDA-Public Use
  Company Number: US-BAYER-201031337NA

PATIENT
  Age: 22 Year
  Sex: Female
  Weight: 90.703 kg

DRUGS (10)
  1. CIPROFLOXACIN [Concomitant]
     Dosage: 500 MG, BID, FOR 7 DAYS
     Route: 048
     Dates: start: 20080609
  2. MULTI-VITAMIN [Concomitant]
  3. DONATUSSIN DC [Concomitant]
     Dosage: 2 TEASPOONS, TID, FOR 7 DAYS
     Route: 048
     Dates: start: 20080609
  4. DIFLUCAN [Concomitant]
     Dosage: 150 MG, ONE DOSE ONLY
     Route: 048
     Dates: start: 20080609
  5. YAZ [Suspect]
     Dosage: UNK
     Route: 048
     Dates: start: 20070101, end: 20090101
  6. YASMIN [Suspect]
     Route: 048
  7. XANAX [Concomitant]
  8. GAS-X [Concomitant]
     Indication: FLATULENCE
     Dosage: UNK
     Dates: start: 20080806
  9. BENADRYL [Concomitant]
  10. AMOXICILLIN AND CLAVULANATE POTASSIUM [Concomitant]
     Dosage: 875 MG, UNK

REACTIONS (3)
  - CHOLECYSTITIS CHRONIC [None]
  - GALLBLADDER CHOLESTEROLOSIS [None]
  - CHOLECYSTECTOMY [None]
